FAERS Safety Report 7311851-8 (Version None)
Quarter: 2011Q1

REPORT INFORMATION
  Report Type: 
  Country: None (occurrence: None)
  Receive Date: 20110224
  Receipt Date: 20100908
  Transmission Date: 20110831
  Serious: Yes (Other)
  Sender: FDA-Public Use
  Company Number: US-BAYER-200937536NA

PATIENT
  Sex: Female
  Weight: 71.202 kg

DRUGS (2)
  1. VICODIN [Concomitant]
  2. YAZ [Suspect]
     Indication: ORAL CONTRACEPTION
     Dosage: UNK
     Dates: start: 20070401, end: 20070601

REACTIONS (5)
  - PAIN [None]
  - CHOLELITHIASIS [None]
  - VOMITING [None]
  - CHOLECYSTITIS [None]
  - ABDOMINAL PAIN UPPER [None]
